FAERS Safety Report 16491196 (Version 1)
Quarter: 2019Q2

REPORT INFORMATION
  Report Type: Spontaneous
  Country: GB (occurrence: GB)
  Receive Date: 20190628
  Receipt Date: 20190628
  Transmission Date: 20190711
  Serious: Yes (Hospitalization, Other)
  Sender: FDA-Public Use
  Company Number: GB-TEVA-2019-GB-1070141

PATIENT
  Age: 81 Year
  Sex: Female
  Weight: 58 kg

DRUGS (9)
  1. VITAMIN B12 [Concomitant]
     Active Substance: CYANOCOBALAMIN
  2. FELODIPINE. [Concomitant]
     Active Substance: FELODIPINE
  3. GABAPENTIN. [Concomitant]
     Active Substance: GABAPENTIN
  4. BISOPROLOL [Concomitant]
     Active Substance: BISOPROLOL
  5. LOPERAMIDE [Concomitant]
     Active Substance: LOPERAMIDE
  6. LYNLOR [Concomitant]
     Active Substance: OXYCODONE HYDROCHLORIDE
  7. OMEPRAZOLE. [Suspect]
     Active Substance: OMEPRAZOLE
     Indication: DYSPEPSIA
     Route: 048
     Dates: start: 20100701, end: 20190514
  8. PARACETAMOL [Concomitant]
     Active Substance: ACETAMINOPHEN
  9. FOLIC ACID. [Concomitant]
     Active Substance: FOLIC ACID

REACTIONS (3)
  - Blood parathyroid hormone increased [Unknown]
  - Blood calcium decreased [Unknown]
  - Hypomagnesaemia [Recovered/Resolved]

NARRATIVE: CASE EVENT DATE: 20190509
